FAERS Safety Report 13393989 (Version 1)
Quarter: 2017Q1

REPORT INFORMATION
  Report Type: Spontaneous
  Country: US (occurrence: US)
  Receive Date: 20170331
  Receipt Date: 20170331
  Transmission Date: 20170429
  Serious: No
  Sender: FDA-Public Use
  Company Number: US-ELI_LILLY_AND_COMPANY-US201608002730

PATIENT
  Age: 43 Year
  Sex: Female

DRUGS (1)
  1. CYMBALTA [Suspect]
     Active Substance: DULOXETINE HYDROCHLORIDE
     Indication: MUSCULOSKELETAL PAIN
     Dosage: 60 MG, QD
     Route: 048
     Dates: start: 201301

REACTIONS (15)
  - Back pain [Unknown]
  - Drug withdrawal syndrome [Unknown]
  - Affect lability [Unknown]
  - Dysphoria [Unknown]
  - Irritability [Unknown]
  - Anxiety [Unknown]
  - Intentional product misuse [Unknown]
  - Pain in extremity [Unknown]
  - Hyperhidrosis [Unknown]
  - Headache [Unknown]
  - Abdominal distension [Unknown]
  - Agitation [Unknown]
  - Vomiting [Unknown]
  - Insomnia [Unknown]
  - Paraesthesia [Unknown]

NARRATIVE: CASE EVENT DATE: 201401
